FAERS Safety Report 25657820 (Version 1)
Quarter: 2025Q3

REPORT INFORMATION
  Report Type: Spontaneous
  Country: EU (occurrence: EU)
  Receive Date: 20250808
  Receipt Date: 20250808
  Transmission Date: 20251020
  Serious: Yes (Life-Threatening)
  Sender: CHEPLAPHARM
  Company Number: None

PATIENT
  Age: 62 Year
  Sex: Male
  Weight: 114 kg

DRUGS (18)
  1. QUETIAPINE [Suspect]
     Active Substance: QUETIAPINE
     Indication: Poisoning deliberate
     Route: 048
     Dates: start: 20250624, end: 20250624
  2. LORMETAZEPAM [Suspect]
     Active Substance: LORMETAZEPAM
     Dosage: DAILY DOSE: 2 MILLIGRAM
  3. DIAZEPAM [Suspect]
     Active Substance: DIAZEPAM
  4. OXAZEPAM [Suspect]
     Active Substance: OXAZEPAM
  5. PROPRANOLOL [Suspect]
     Active Substance: PROPRANOLOL HYDROCHLORIDE
  6. ALCOHOL [Suspect]
     Active Substance: ALCOHOL
  7. RASAGILINE [Concomitant]
     Active Substance: RASAGILINE
  8. Ropinirole LP [Concomitant]
  9. AMANTADINE [Concomitant]
     Active Substance: AMANTADINE
  10. TRIMEPRAZINE [Concomitant]
     Active Substance: TRIMEPRAZINE
  11. ANETHOLTRITHION [Concomitant]
     Active Substance: ANETHOLTRITHION
  12. ASPIRIN [Concomitant]
     Active Substance: ASPIRIN
     Dosage: DAILY DOSE: 100 MILLIGRAM
  13. MIRTAZAPINE [Concomitant]
     Active Substance: MIRTAZAPINE
     Dosage: 0-0-1
  14. AMITRIPTYLINE HYDROCHLORIDE [Concomitant]
     Active Substance: AMITRIPTYLINE HYDROCHLORIDE
     Dosage: 3 DROPS IN THE EVENING?DAILY DOSE: 3 DROP
  15. ROSUVASTATIN [Concomitant]
     Active Substance: ROSUVASTATIN
     Dosage: DAILY DOSE: 10 MILLIGRAM
  16. FENOFIBRATE [Concomitant]
     Active Substance: FENOFIBRATE
     Dosage: 0-0-1
  17. FLUTICASONE FUROATE\VILANTEROL TRIFENATATE [Concomitant]
     Active Substance: FLUTICASONE FUROATE\VILANTEROL TRIFENATATE
  18. OMEPRAZOLE [Concomitant]
     Active Substance: OMEPRAZOLE
     Dosage: 0-0-1

REACTIONS (2)
  - Coma [Recovered/Resolved]
  - Poisoning deliberate [Recovered/Resolved]

NARRATIVE: CASE EVENT DATE: 20250624
